FAERS Safety Report 8559378-X (Version None)
Quarter: 2012Q3

REPORT INFORMATION
  Report Type: 
  Country: None (occurrence: None)
  Receive Date: 20120802
  Receipt Date: 20120720
  Transmission Date: 20120928
  Serious: Yes (Hospitalization, Other)
  Sender: FDA-Public Use
  Company Number: FR-GENZYME-THYM-1003347

PATIENT
  Sex: Male

DRUGS (9)
  1. AMSALYO [Suspect]
     Indication: BONE MARROW CONDITIONING REGIMEN
     Dosage: 198 MG, QD
     Route: 042
     Dates: start: 20120512, end: 20120515
  2. CYCLOPHOSPHAMIDE [Suspect]
     Indication: BONE MARROW CONDITIONING REGIMEN
     Dosage: 4800 MG, UNK
     Route: 042
     Dates: start: 20120519
  3. THYMOGLOBULIN [Suspect]
     Dosage: 200 MG, UNK
     Route: 042
     Dates: start: 20120524, end: 20120524
  4. THYMOGLOBULIN [Suspect]
     Indication: BONE MARROW CONDITIONING REGIMEN
     Dosage: 40 MG, UNK
     Route: 042
     Dates: start: 20120522, end: 20120522
  5. GRANOCYTE [Suspect]
     Indication: BONE MARROW CONDITIONING REGIMEN
     Dosage: 263 MCG, QD
     Route: 065
     Dates: start: 20120512, end: 20120515
  6. THYMOGLOBULIN [Suspect]
     Dosage: 160 MG, UNK
     Route: 042
     Dates: start: 20120523, end: 20120523
  7. BUSULFAN [Suspect]
     Indication: BONE MARROW CONDITIONING REGIMEN
     Dosage: 64 MG, QID
     Route: 065
     Dates: start: 20120520, end: 20120521
  8. CYTARABINE [Suspect]
     Indication: BONE MARROW CONDITIONING REGIMEN
     Dosage: 1980 MG, BID
     Route: 042
     Dates: start: 20120512, end: 20120515
  9. FLUDARABINE PHOSPHATE [Suspect]
     Indication: BONE MARROW CONDITIONING REGIMEN
     Dosage: 60 MG, QD
     Route: 042
     Dates: start: 20120512, end: 20120515

REACTIONS (5)
  - GENERALISED OEDEMA [None]
  - JAUNDICE CHOLESTATIC [None]
  - VENOOCCLUSIVE DISEASE [None]
  - ABDOMINAL PAIN UPPER [None]
  - HEPATIC FAILURE [None]
